FAERS Safety Report 15224982 (Version 1)
Quarter: 2018Q3

REPORT INFORMATION
  Report Type: Spontaneous
  Country: DE (occurrence: DE)
  Receive Date: 20180801
  Receipt Date: 20180801
  Transmission Date: 20181010
  Serious: Yes (Other)
  Sender: FDA-Public Use
  Company Number: DE-CONCORDIA PHARMACEUTICALS INC.-E2B_00011571

PATIENT
  Age: 30 Year
  Sex: Female
  Weight: 99 kg

DRUGS (8)
  1. FOLIC ACID. [Concomitant]
     Active Substance: FOLIC ACID
     Indication: PREGNANCY
     Dosage: 5 MG, QD
     Route: 048
  2. KEPPRA [Concomitant]
     Active Substance: LEVETIRACETAM
     Dosage: 750 MG, BID
     Route: 048
     Dates: start: 2007
  3. TIMOX [Suspect]
     Active Substance: OXCARBAZEPINE
     Indication: EPILEPSY
     Dosage: 400 MG
     Route: 048
  4. PREDNISOLONE. [Suspect]
     Active Substance: PREDNISOLONE
     Indication: SYSTEMIC LUPUS ERYTHEMATOSUS
     Dosage: 1 MG, QD
     Route: 048
  5. QUENSYL [Concomitant]
     Active Substance: HYDROXYCHLOROQUINE
     Indication: SYSTEMIC LUPUS ERYTHEMATOSUS
     Dosage: 200 MG, BID
     Route: 048
  6. TIMOX [Suspect]
     Active Substance: OXCARBAZEPINE
     Dosage: 600 MG, TID
     Route: 048
     Dates: start: 2005
  7. KEPPRA [Concomitant]
     Active Substance: LEVETIRACETAM
     Indication: EPILEPSY
     Dosage: 500 MG, TID
     Route: 048
  8. PREDNISOLONE. [Suspect]
     Active Substance: PREDNISOLONE
     Indication: COLITIS ULCERATIVE
     Dosage: ACUTE THERAPY WITH INITIAL BODY WEIGHT ADJUSTED DOSE 70MG; THE DOSE WAS ADJUSTED AT A RESPONSE DEP
     Route: 065

REACTIONS (4)
  - Drug level fluctuating [Not Recovered/Not Resolved]
  - Exposure during pregnancy [Recovered/Resolved]
  - Normal newborn [Unknown]
  - Generalised tonic-clonic seizure [Not Recovered/Not Resolved]
